FAERS Safety Report 12626216 (Version 6)
Quarter: 2017Q4

REPORT INFORMATION
  Report Type: Spontaneous
  Country: US (occurrence: US)
  Receive Date: 20160805
  Receipt Date: 20171221
  Transmission Date: 20180320
  Serious: Yes (Hospitalization, Other)
  Sender: FDA-Public Use
  Company Number: US-ACTELION-A-US2014-107240

PATIENT
  Age: 70 Year
  Sex: Female

DRUGS (15)
  1. ESBRIET [Suspect]
     Active Substance: PIRFENIDONE
     Indication: PRODUCT USED FOR UNKNOWN INDICATION
     Route: 065
  2. SPIRONOLACTONE. [Concomitant]
     Active Substance: SPIRONOLACTONE
  3. ALBUTEROL. [Concomitant]
     Active Substance: ALBUTEROL
  4. MILK OF MAGNESIA [Concomitant]
     Active Substance: MAGNESIUM HYDROXIDE
  5. LASIX [Concomitant]
     Active Substance: FUROSEMIDE
  6. IRON [Concomitant]
     Active Substance: IRON
  7. PROTONIX [Concomitant]
     Active Substance: PANTOPRAZOLE SODIUM
  8. OPSUMIT [Suspect]
     Active Substance: MACITENTAN
     Indication: PULMONARY ARTERIAL HYPERTENSION
     Dosage: 10 MG, QD
     Route: 048
     Dates: start: 20141013
  9. VALIUM [Concomitant]
     Active Substance: DIAZEPAM
  10. SYNTHROID [Concomitant]
     Active Substance: LEVOTHYROXINE SODIUM
  11. METOPROLOL TARTRATE. [Concomitant]
     Active Substance: METOPROLOL TARTRATE
  12. COLACE [Concomitant]
     Active Substance: DOCUSATE SODIUM
  13. WARFARIN [Concomitant]
     Active Substance: WARFARIN
  14. LINZESS [Concomitant]
     Active Substance: LINACLOTIDE
  15. AMITIZA [Concomitant]
     Active Substance: LUBIPROSTONE

REACTIONS (14)
  - Oedema [Not Recovered/Not Resolved]
  - Dyspepsia [Not Recovered/Not Resolved]
  - Chest pain [Not Recovered/Not Resolved]
  - Dyspnoea [Unknown]
  - Fatigue [Unknown]
  - Abdominal distension [Unknown]
  - Idiopathic pulmonary fibrosis [Not Recovered/Not Resolved]
  - Ascites [Unknown]
  - Muscle twitching [Not Recovered/Not Resolved]
  - Limb discomfort [Unknown]
  - Drug dose omission [Unknown]
  - Restless legs syndrome [Unknown]
  - Diarrhoea [Not Recovered/Not Resolved]
  - Chest discomfort [Unknown]

NARRATIVE: CASE EVENT DATE: 201410
